FAERS Safety Report 12449593 (Version 1)
Quarter: 2016Q2

REPORT INFORMATION
  Report Type: Spontaneous
  Country: CA (occurrence: CA)
  Receive Date: 20160609
  Receipt Date: 20160609
  Transmission Date: 20160815
  Serious: Yes (Other)
  Sender: FDA-Public Use
  Company Number: CA-ROCHE-1769727

PATIENT
  Age: 78 Year
  Sex: Female

DRUGS (1)
  1. TAMIFLU [Suspect]
     Active Substance: OSELTAMIVIR PHOSPHATE
     Indication: INFLUENZA
     Route: 048
     Dates: start: 201602, end: 201602

REACTIONS (7)
  - Swollen tongue [Recovered/Resolved]
  - Vertigo [Recovered/Resolved]
  - Faeces hard [Recovering/Resolving]
  - Dyspnoea [Recovered/Resolved]
  - Oropharyngeal plaque [Recovered/Resolved]
  - Constipation [Recovering/Resolving]
  - Faeces discoloured [Recovering/Resolving]

NARRATIVE: CASE EVENT DATE: 201602
